FAERS Safety Report 9351174 (Version 4)
Quarter: 2014Q3

REPORT INFORMATION
  Report Type: Spontaneous
  Country: US (occurrence: US)
  Receive Date: 20130617
  Receipt Date: 20140710
  Transmission Date: 20150326
  Serious: Yes (Life-Threatening, Hospitalization)
  Sender: FDA-Public Use
  Company Number: US-BAYER-2013-071358

PATIENT
  Age: 26 Year
  Sex: Female
  Weight: 63.49 kg

DRUGS (6)
  1. PERCOCET [Concomitant]
     Active Substance: ACETAMINOPHEN\OXYCODONE HYDROCHLORIDE
     Indication: PAIN IN EXTREMITY
  2. IBUPROFEN. [Concomitant]
     Active Substance: IBUPROFEN
     Dosage: SPORADICALLY
     Route: 048
     Dates: start: 2000, end: 2012
  3. MACROBID [Concomitant]
     Active Substance: NITROFURANTOIN\NITROFURANTOIN MONOHYDRATE
  4. PERCOCET [Concomitant]
     Active Substance: ACETAMINOPHEN\OXYCODONE HYDROCHLORIDE
     Indication: BACK PAIN
  5. YASMIN [Suspect]
     Active Substance: DROSPIRENONE\ETHINYL ESTRADIOL
     Indication: ACNE
     Dosage: UNK
     Dates: start: 201202, end: 20120810
  6. PROTONIX [Concomitant]
     Active Substance: PANTOPRAZOLE SODIUM

REACTIONS (23)
  - Dyspnoea [None]
  - Anxiety [None]
  - Activities of daily living impaired [None]
  - Injury [None]
  - Thrombophlebitis superficial [Recovered/Resolved]
  - Anhedonia [None]
  - Fear of disease [None]
  - Groin pain [None]
  - Gait disturbance [None]
  - Nausea [None]
  - Fatigue [None]
  - Deep vein thrombosis [Recovered/Resolved]
  - Pulmonary embolism [None]
  - General physical health deterioration [None]
  - Asthenia [None]
  - Depressed mood [None]
  - Thrombosis [None]
  - Abdominal pain lower [None]
  - Peripheral swelling [None]
  - Blood pressure increased [None]
  - Deep vein thrombosis [None]
  - Emotional distress [None]
  - Back pain [None]

NARRATIVE: CASE EVENT DATE: 201208
